FAERS Safety Report 18947975 (Version 1)
Quarter: 2021Q1

REPORT INFORMATION
  Report Type: Spontaneous
  Country: US (occurrence: US)
  Receive Date: 20210227
  Receipt Date: 20210227
  Transmission Date: 20210420
  Serious: No
  Sender: FDA-Public Use
  Company Number: NVSC2021US046381

PATIENT
  Age: 32 Year
  Sex: Male
  Weight: 73.5 kg

DRUGS (1)
  1. TOBI [Suspect]
     Active Substance: TOBRAMYCIN
     Indication: CYSTIC FIBROSIS
     Dosage: 2 TIMES DAILY EVERY OTHER MONTH
     Route: 055

REACTIONS (1)
  - Arthralgia [Unknown]
